FAERS Safety Report 4630059-8 (Version None)
Quarter: 2005Q2

REPORT INFORMATION
  Report Type: 
  Country: None (occurrence: None)
  Receive Date: 20050408
  Receipt Date: 20050329
  Transmission Date: 20051028
  Serious: Yes (Hospitalization)
  Sender: FDA-Public Use
  Company Number: FR-ABBOTT-05P-056-0295440-00

PATIENT
  Sex: Female

DRUGS (2)
  1. DEPAKENE [Suspect]
     Indication: PARTIAL SEIZURES
     Route: 048
     Dates: start: 19980701, end: 20050209
  2. PHENYTOIN [Suspect]
     Indication: PARTIAL SEIZURES
     Route: 048
     Dates: start: 19980701, end: 20050209

REACTIONS (6)
  - ACNE [None]
  - ACUTE RESPIRATORY FAILURE [None]
  - HEPATIC FAILURE [None]
  - HYPERAMMONAEMIA [None]
  - LUNG DISORDER [None]
  - SOMNOLENCE [None]
